FAERS Safety Report 5522247-3 (Version None)
Quarter: 2007Q4

REPORT INFORMATION
  Report Type: 
  Country: None (occurrence: None)
  Receive Date: 20071120
  Receipt Date: 20071109
  Transmission Date: 20080405
  Serious: Yes (Death)
  Sender: FDA-Public Use
  Company Number: CH-JNJFOC-20071103922

PATIENT
  Age: 6 Decade
  Sex: Female

DRUGS (8)
  1. DURAGESIC-100 [Suspect]
     Indication: DRUG USE FOR UNKNOWN INDICATION
     Route: 062
     Dates: start: 20070716, end: 20070720
  2. HYDROMORPHONE HYDROCHLORIDE [Suspect]
     Indication: DRUG USE FOR UNKNOWN INDICATION
     Route: 048
     Dates: start: 20070401, end: 20070716
  3. DEPAKINE SIROP [Suspect]
     Indication: DRUG USE FOR UNKNOWN INDICATION
     Route: 048
  4. KEPPRA [Suspect]
     Indication: DRUG USE FOR UNKNOWN INDICATION
     Route: 048
  5. LORAZEPAM [Concomitant]
     Route: 065
  6. SEROQUEL [Concomitant]
     Route: 048
  7. RIVOTRIL [Concomitant]
     Route: 065
  8. ROBINUL [Concomitant]
     Route: 058

REACTIONS (5)
  - AGITATION [None]
  - CARDIAC FAILURE [None]
  - CRYING [None]
  - HYPERAESTHESIA [None]
  - SEPSIS [None]
